FAERS Safety Report 6585150-6 (Version None)
Quarter: 2010Q1

REPORT INFORMATION
  Report Type: 
  Country: None (occurrence: None)
  Receive Date: 20100217
  Receipt Date: 20100204
  Transmission Date: 20100710
  Serious: No
  Sender: FDA-Public Use
  Company Number: FR-ROCHE-684957

PATIENT
  Sex: Female

DRUGS (3)
  1. TAMIFLU [Suspect]
     Dosage: 2 CAPSULES IN MORNING, 2 CAPSULES IN EVENING; OVERDOSE
     Route: 048
     Dates: start: 20100202, end: 20100203
  2. TAMIFLU [Suspect]
     Route: 048
     Dates: start: 20100201
  3. PYOSTACINE [Concomitant]
     Route: 065

REACTIONS (4)
  - HEADACHE [None]
  - OVERDOSE [None]
  - PALPITATIONS [None]
  - TINNITUS [None]
